FAERS Safety Report 9743066 (Version 2)
Quarter: 2013Q4

REPORT INFORMATION
  Report Type: Spontaneous
  Country: US (occurrence: US)
  Receive Date: 20131210
  Receipt Date: 20131210
  Transmission Date: 20140711
  Serious: Yes (Other)
  Sender: FDA-Public Use
  Company Number: US-TEVA-352939USA

PATIENT
  Age: 40 Year
  Sex: Female
  Weight: 52.21 kg

DRUGS (8)
  1. PARAGARD 380A [Suspect]
     Indication: CONTRACEPTION
     Route: 015
     Dates: start: 20060803, end: 20120706
  2. WELLBUTRIN [Concomitant]
     Indication: ANXIETY
  3. WELLBUTRIN [Concomitant]
     Indication: DEPRESSION
  4. ZOLOFT [Concomitant]
     Indication: DEPRESSION
  5. ZOLOFT [Concomitant]
     Indication: ANXIETY
  6. ATIVAN [Concomitant]
     Indication: ANXIETY
  7. ATIVAN [Concomitant]
     Indication: DEPRESSION
  8. VITAMINS [Concomitant]
     Indication: VITAMIN SUPPLEMENTATION

REACTIONS (1)
  - Medical device complication [Not Recovered/Not Resolved]
